FAERS Safety Report 4535983-2 (Version None)
Quarter: 2004Q4

REPORT INFORMATION
  Report Type: 
  Country: None (occurrence: None)
  Receive Date: 20041216
  Receipt Date: 20040813
  Transmission Date: 20050328
  Serious: Yes (Other)
  Sender: FDA-Public Use
  Company Number: HQWYE288616AUG04

PATIENT
  Age: 19 Year
  Sex: Female
  Weight: 59.02 kg

DRUGS (3)
  1. EFFEXOR XR [Suspect]
     Indication: OBSESSIVE-COMPULSIVE DISORDER
     Dosage: 75 MG 1X PER 1 DAY, ORAL
     Route: 048
     Dates: end: 20040101
  2. EFFEXOR XR [Suspect]
     Indication: OBSESSIVE-COMPULSIVE DISORDER
     Dosage: 75 MG 1X PER 1 DAY, ORAL
     Route: 048
     Dates: start: 20040101
  3. EFFEXOR [Suspect]
     Indication: OBSESSIVE-COMPULSIVE DISORDER
     Dosage: 37.5 MG - INTIAL FREQUENCY UNKNOWN, BUT THEN BEGAN TAKING THEM TWICE A DAY, ORAL
     Route: 048
     Dates: start: 20040101

REACTIONS (2)
  - CONVULSION [None]
  - DRUG EFFECT DECREASED [None]
